FAERS Safety Report 12137488 (Version 1)
Quarter: 2016Q1

REPORT INFORMATION
  Report Type: Report from Study
  Country: CA (occurrence: CA)
  Receive Date: 20160302
  Receipt Date: 20160302
  Transmission Date: 20160526
  Serious: Yes (Other)
  Sender: FDA-Public Use
  Company Number: CA-JNJFOC-20151116403

PATIENT
  Age: 34 Year
  Sex: Female

DRUGS (1)
  1. SIMPONI [Suspect]
     Active Substance: GOLIMUMAB
     Indication: ARTHRITIS REACTIVE
     Route: 058
     Dates: start: 20151107

REACTIONS (6)
  - Off label use [Unknown]
  - Musculoskeletal stiffness [Unknown]
  - Pneumonia [Recovered/Resolved]
  - Alopecia [Recovering/Resolving]
  - Lymphadenopathy [Unknown]
  - Product use issue [Unknown]

NARRATIVE: CASE EVENT DATE: 201511
